FAERS Safety Report 7779131-4 (Version None)
Quarter: 2011Q3

REPORT INFORMATION
  Report Type: 
  Country: None (occurrence: None)
  Receive Date: 20110926
  Receipt Date: 20110922
  Transmission Date: 20111222
  Serious: Yes (Other)
  Sender: FDA-Public Use
  Company Number: CHPA2011US12963

PATIENT
  Age: 54 Year
  Sex: Female

DRUGS (2)
  1. MAALOX ADV MAXIMUM STRENGTH ANTACID/ANTIGAS CHEWABLE [Suspect]
     Indication: ANTACID THERAPY
     Dosage: 1 DF, UNK
     Route: 048
  2. MAALOX ADV MAXIMUM STRENGTH ANTACID/ANTIGAS CHEWABLE [Suspect]
     Indication: MINERAL SUPPLEMENTATION

REACTIONS (2)
  - OFF LABEL USE [None]
  - SYSTEMIC LUPUS ERYTHEMATOSUS [None]
